FAERS Safety Report 20393490 (Version 6)
Quarter: 2022Q1

REPORT INFORMATION
  Report Type: Report from Study
  Country: CA (occurrence: CA)
  Receive Date: 20220128
  Receipt Date: 20220302
  Transmission Date: 20220423
  Serious: Yes (Hospitalization)
  Sender: FDA-Public Use
  Company Number: CA-BIOGEN-2022BI01088480

PATIENT
  Sex: Female

DRUGS (1)
  1. DALFAMPRIDINE [Suspect]
     Active Substance: DALFAMPRIDINE
     Indication: Multiple sclerosis
     Route: 048
     Dates: start: 20120725, end: 20220127

REACTIONS (5)
  - Cerebrovascular accident [Not Recovered/Not Resolved]
  - COVID-19 [Unknown]
  - Depression [Unknown]
  - Motor dysfunction [Unknown]
  - Gait inability [Unknown]
